FAERS Safety Report 13952857 (Version 1)
Quarter: 2017Q3

REPORT INFORMATION
  Report Type: Spontaneous
  Country: US (occurrence: US)
  Receive Date: 20170911
  Receipt Date: 20170911
  Transmission Date: 20171128
  Serious: No
  Sender: FDA-Public Use
  Company Number: US-TEVA-788056USA

PATIENT
  Sex: Male

DRUGS (1)
  1. FENTANYL. [Suspect]
     Active Substance: FENTANYL
     Indication: PAIN
     Route: 065
     Dates: start: 20170628

REACTIONS (7)
  - Pain [Unknown]
  - Hyperhidrosis [Unknown]
  - Terminal insomnia [Unknown]
  - Product adhesion issue [Unknown]
  - Drug ineffective [Unknown]
  - Withdrawal syndrome [Unknown]
  - Chills [Unknown]

NARRATIVE: CASE EVENT DATE: 20170628
